FAERS Safety Report 10224002 (Version 1)
Quarter: 2014Q2

REPORT INFORMATION
  Report Type: Spontaneous
  Country: JP (occurrence: JP)
  Receive Date: 20140609
  Receipt Date: 20140609
  Transmission Date: 20141212
  Serious: Yes (Death, Hospitalization)
  Sender: FDA-Public Use
  Company Number: JP-NOVOPROD-412038

PATIENT
  Age: 82 Year
  Sex: Male
  Weight: 50 kg

DRUGS (9)
  1. NOVOSEVEN HI [Suspect]
     Indication: ACQUIRED HAEMOPHILIA
     Dosage: 20 MG
     Route: 042
     Dates: start: 20140514, end: 20140514
  2. NOVOSEVEN HI [Suspect]
     Dosage: 40 MG
     Route: 042
     Dates: start: 20140515, end: 20140515
  3. NOVOSEVEN HI [Suspect]
     Dosage: 20 MG
     Route: 042
     Dates: start: 20140516, end: 20140516
  4. NOVOSEVEN HI [Suspect]
     Dosage: 15 MG
     Route: 042
     Dates: start: 20140517, end: 20140517
  5. NOVOSEVEN HI [Suspect]
     Dosage: 5 MG, BID
     Route: 042
     Dates: start: 20140518, end: 20140518
  6. NOVOSEVEN HI [Suspect]
     Dosage: 5 MG, QD
     Route: 042
     Dates: start: 20140527, end: 20140527
  7. PREDONINE                          /00016201/ [Concomitant]
     Indication: IMMUNOSUPPRESSION
     Dosage: 50 MG, QD
     Route: 048
     Dates: start: 20140514, end: 20140525
  8. PREDONINE                          /00016201/ [Concomitant]
     Indication: IMMUNOSUPPRESSION
     Dosage: 500 MG, QD
     Route: 042
     Dates: start: 20140526, end: 20140527
  9. EXFORGE [Concomitant]
     Indication: HYPERTENSION
     Dosage: 1 TAB, QD
     Route: 048
     Dates: end: 20140527

REACTIONS (2)
  - Haemorrhage subcutaneous [Fatal]
  - Muscle haemorrhage [Fatal]
